FAERS Safety Report 14242302 (Version 1)
Quarter: 2017Q4

REPORT INFORMATION
  Report Type: Spontaneous
  Country: US (occurrence: US)
  Receive Date: 20171130
  Receipt Date: 20171130
  Transmission Date: 20180321
  Serious: Yes (Other)
  Sender: FDA-Public Use
  Company Number: None

PATIENT
  Sex: Female
  Weight: 54 kg

DRUGS (1)
  1. KENALOG [Suspect]
     Active Substance: TRIAMCINOLONE ACETONIDE
     Indication: SINUSITIS
     Route: 058
     Dates: start: 20171127

REACTIONS (17)
  - Hyperhidrosis [None]
  - Fatigue [None]
  - Palpitations [None]
  - Nasopharyngitis [None]
  - Disturbance in attention [None]
  - Panic attack [None]
  - Dizziness [None]
  - Nervousness [None]
  - Nausea [None]
  - Decreased appetite [None]
  - Loss of consciousness [None]
  - Sluggishness [None]
  - Anxiety [None]
  - Abdominal pain upper [None]
  - Hypoaesthesia [None]
  - Paraesthesia [None]
  - Memory impairment [None]

NARRATIVE: CASE EVENT DATE: 20171128
